FAERS Safety Report 11001615 (Version 2)
Quarter: 2015Q2

REPORT INFORMATION
  Report Type: Spontaneous
  Country: US (occurrence: US)
  Receive Date: 20150408
  Receipt Date: 20150428
  Transmission Date: 20150821
  Serious: No
  Sender: FDA-Public Use
  Company Number: US-PFIZER INC-2015118257

PATIENT
  Age: 73 Year
  Sex: Female
  Weight: 110 kg

DRUGS (2)
  1. REVATIO [Suspect]
     Active Substance: SILDENAFIL CITRATE
     Dosage: 20 MG, 2 IN MORNING, 1 IN AFTERNOON, AND 1 IN EVENING 4-5 HOURS LATER
  2. REVATIO [Suspect]
     Active Substance: SILDENAFIL CITRATE
     Dosage: 20 MG AM, 20 MG AT 1PM, 20 MG AT 6PM
     Dates: start: 2000

REACTIONS (2)
  - Tooth disorder [Recovered/Resolved]
  - Speech disorder [Recovered/Resolved]

NARRATIVE: CASE EVENT DATE: 20150331
